FAERS Safety Report 4402887-5 (Version None)
Quarter: 2004Q3

REPORT INFORMATION
  Report Type: 
  Country: None (occurrence: None)
  Receive Date: 20040716
  Receipt Date: 20040712
  Transmission Date: 20050211
  Serious: Yes (Hospitalization)
  Sender: FDA-Public Use
  Company Number: TPA2004A00849

PATIENT
  Age: 57 Year
  Sex: Female

DRUGS (6)
  1. ACTOS [Suspect]
     Indication: BLOOD TRIGLYCERIDES INCREASED
     Dosage: 30 MG, 1 IN 1 D, PER ORAL
     Route: 048
     Dates: start: 20031101, end: 20040501
  2. LIPITOR (ATORVASTATIN) (10 MILLIGRAM) [Concomitant]
  3. TRICOR(FENOFIBRATE) (160 MILLIGRAM) [Concomitant]
  4. ALLEGRA(FEXOFENADINE HYDROCHLORIDE) (180 MILLIGRAM) [Concomitant]
  5. SYNTHROID (LEVOTHYROXINE SODIUM) (50 MICROGRAM) [Concomitant]
  6. DIOVAN/HCT(CO-DIOVAN) [Concomitant]

REACTIONS (3)
  - FALL [None]
  - LIMB INJURY [None]
  - OEDEMA PERIPHERAL [None]
